FAERS Safety Report 4931775-0 (Version None)
Quarter: 2006Q1

REPORT INFORMATION
  Report Type: 
  Country: None (occurrence: None)
  Receive Date: 20060303
  Receipt Date: 20060224
  Transmission Date: 20060701
  Serious: Yes (Life-Threatening, Hospitalization)
  Sender: FDA-Public Use
  Company Number: GB-AVENTIS-200611167EU

PATIENT
  Age: 64 Year
  Sex: Male

DRUGS (8)
  1. FRUSEMIDE [Suspect]
     Indication: DRUG USE FOR UNKNOWN INDICATION
  2. LISINOPRIL [Suspect]
     Indication: NEPHROTIC SYNDROME
     Route: 048
  3. SPIRONOLACTONE [Suspect]
     Indication: DRUG USE FOR UNKNOWN INDICATION
  4. AMILORIDE HCL [Suspect]
     Indication: DRUG USE FOR UNKNOWN INDICATION
  5. ALLOPURINOL [Concomitant]
  6. CETIRIZINE [Concomitant]
  7. SALBUTAMOL [Concomitant]
     Dosage: DOSE: 2 PUFFS
     Route: 055
  8. DERMOVATE [Concomitant]
     Route: 061

REACTIONS (8)
  - BLOOD BICARBONATE DECREASED [None]
  - BLOOD POTASSIUM INCREASED [None]
  - BLOOD UREA INCREASED [None]
  - DEHYDRATION [None]
  - DIARRHOEA [None]
  - HYPOTENSION [None]
  - RENAL FAILURE ACUTE [None]
  - VOMITING [None]
